FAERS Safety Report 11271236 (Version 1)
Quarter: 2015Q3

REPORT INFORMATION
  Report Type: Spontaneous
  Country: FR (occurrence: FR)
  Receive Date: 20150714
  Receipt Date: 20150714
  Transmission Date: 20151125
  Serious: Yes (Hospitalization)
  Sender: FDA-Public Use
  Company Number: FR-009507513-1507FRA005503

PATIENT
  Age: 11 Year
  Sex: Male
  Weight: 25.8 kg

DRUGS (10)
  1. IFOSFAMIDE. [Suspect]
     Active Substance: IFOSFAMIDE
     Dosage: 3G/M2 IE 2 G, DURING 3 HOURS (DAY 1 AND DAY 2)
     Route: 041
     Dates: start: 20150622, end: 20150622
  2. METHYLPREDNISOLONE. [Concomitant]
     Active Substance: METHYLPREDNISOLONE
     Dosage: 15 MG, UNK
     Route: 042
     Dates: start: 20150622
  3. METHYLENE BLUE. [Concomitant]
     Active Substance: METHYLENE BLUE
     Dosage: 50 MG, EVERY 6 HOURS
     Dates: start: 20150622
  4. IFOSFAMIDE. [Suspect]
     Active Substance: IFOSFAMIDE
     Dosage: 3G/M2 IE 2.8 G, DURING 3 HOURS (DAY 1 AND
     Dates: start: 20150623, end: 20150623
  5. MESNA. [Concomitant]
     Active Substance: MESNA
     Dosage: 3.6 /M2, (DAY 1 AND DAY 2)
     Dates: start: 20150622, end: 20150623
  6. VINCRISTINE SULFATE. [Concomitant]
     Active Substance: VINCRISTINE SULFATE
     Dosage: 15 MG/M2 IE1.4 MG, DAY 1
     Dates: start: 20150622
  7. PRIMPERAN [Concomitant]
     Active Substance: METOCLOPRAMIDE HYDROCHLORIDE
     Dosage: 2.5 MG, 3 TIMES A DAY (DAY 1 -DAY2)
     Dates: start: 20150622, end: 20150623
  8. EMEND [Suspect]
     Active Substance: APREPITANT
     Dosage: 80 MG,  (DAY 1-DAY2)
     Route: 048
     Dates: start: 20150622, end: 20150623
  9. METHYLPREDNISOLONE. [Concomitant]
     Active Substance: METHYLPREDNISOLONE
     Dosage: UNK , UNK
     Route: 042
     Dates: start: 20150623
  10. METHYLENE BLUE. [Concomitant]
     Active Substance: METHYLENE BLUE
     Indication: PROPHYLAXIS
     Dosage: 50 MG, EVERY 6 HOURS
     Dates: start: 20150623

REACTIONS (1)
  - Toxic encephalopathy [Recovering/Resolving]

NARRATIVE: CASE EVENT DATE: 20150622
